FAERS Safety Report 14394630 (Version 2)
Quarter: 2018Q1

REPORT INFORMATION
  Report Type: Spontaneous
  Country: JP (occurrence: JP)
  Receive Date: 20180116
  Receipt Date: 20180216
  Transmission Date: 20180509
  Serious: Yes (Death, Hospitalization, Disabling, Other)
  Sender: FDA-Public Use
  Company Number: JP-PFIZER INC-2017495846

PATIENT
  Age: 79 Year
  Sex: Male
  Weight: 57.8 kg

DRUGS (3)
  1. CYRAMZA [Concomitant]
     Active Substance: RAMUCIRUMAB
     Dosage: UNK
  2. PACLITAXEL 100MG/16.7ML HOSPIRA [Suspect]
     Active Substance: PACLITAXEL
     Dosage: 120 MG/M2, UNK
     Route: 041
     Dates: end: 20170303
  3. PACLITAXEL 100MG/16.7ML HOSPIRA [Suspect]
     Active Substance: PACLITAXEL
     Indication: GASTRIC CANCER
     Dosage: 90 MG/M2, UNK
     Route: 041
     Dates: start: 20170126

REACTIONS (13)
  - Neoplasm progression [Fatal]
  - Blood creatinine increased [Unknown]
  - Pleural effusion [Unknown]
  - White blood cell count increased [Unknown]
  - Interstitial lung disease [Recovered/Resolved with Sequelae]
  - Blood alkaline phosphatase increased [Unknown]
  - C-reactive protein increased [Unknown]
  - Oral candidiasis [Unknown]
  - Alanine aminotransferase increased [Unknown]
  - Haematemesis [Unknown]
  - Aspartate aminotransferase increased [Unknown]
  - Blood urea increased [Unknown]
  - Platelet count decreased [Unknown]

NARRATIVE: CASE EVENT DATE: 20170310
